FAERS Safety Report 13767726 (Version 1)
Quarter: 2017Q3

REPORT INFORMATION
  Report Type: Spontaneous
  Country: US (occurrence: US)
  Receive Date: 20170719
  Receipt Date: 20170719
  Transmission Date: 20171127
  Serious: No
  Sender: FDA-Public Use
  Company Number: US-GLENMARK PHARMACEUTICALS-2017GMK026942

PATIENT

DRUGS (1)
  1. MOMETASONE FUROATE CREAM USP [Suspect]
     Active Substance: MOMETASONE FUROATE
     Indication: RADIOTHERAPY TO BREAST
     Dosage: 1 DF, BID
     Route: 061
     Dates: start: 20170227, end: 20170320

REACTIONS (6)
  - Product use in unapproved indication [Unknown]
  - Product physical issue [Unknown]
  - Application site exfoliation [Unknown]
  - Application site pain [Unknown]
  - Application site discharge [Unknown]
  - Application site irritation [Not Recovered/Not Resolved]

NARRATIVE: CASE EVENT DATE: 20170227
